FAERS Safety Report 18141663 (Version 2)
Quarter: 2020Q3

REPORT INFORMATION
  Report Type: Report from Study
  Country: CO (occurrence: CO)
  Receive Date: 20200812
  Receipt Date: 20200813
  Transmission Date: 20201103
  Serious: Yes (Other)
  Sender: FDA-Public Use
  Company Number: CO-EMD SERONO-9179533

PATIENT
  Age: 13 Year
  Sex: Male

DRUGS (2)
  1. SAIZEN [Suspect]
     Active Substance: SOMATROPIN
     Dosage: INFREQUENT DOSING
     Route: 058
     Dates: start: 202006
  2. SAIZEN [Suspect]
     Active Substance: SOMATROPIN
     Indication: MUSCULOSKELETAL DISORDER
     Route: 058
     Dates: start: 20190430, end: 202006

REACTIONS (3)
  - Treatment noncompliance [Unknown]
  - Syncope [Recovered/Resolved]
  - Dizziness [Recovered/Resolved]

NARRATIVE: CASE EVENT DATE: 20200228
